FAERS Safety Report 6096706-1 (Version None)
Quarter: 2009Q1

REPORT INFORMATION
  Report Type: 
  Country: None (occurrence: None)
  Receive Date: 20090225
  Receipt Date: 20090225
  Transmission Date: 20090719
  Serious: Yes (Life-Threatening, Hospitalization)
  Sender: FDA-Public Use
  Company Number: None

PATIENT
  Age: 81 Year
  Sex: Male
  Weight: 82.37 kg

DRUGS (1)
  1. ENOXAPARIN SODIUM [Suspect]
     Dosage: 70 MG EVERY DAY SQ
     Dates: start: 20090115, end: 20090120

REACTIONS (5)
  - ASTHENIA [None]
  - AZOTAEMIA [None]
  - CARDIOGENIC SHOCK [None]
  - HEPARIN-INDUCED THROMBOCYTOPENIA [None]
  - MYOPATHY [None]
